FAERS Safety Report 5916500-9 (Version None)
Quarter: 2008Q4

REPORT INFORMATION
  Report Type: 
  Country: None (occurrence: None)
  Receive Date: 20081013
  Receipt Date: 20081006
  Transmission Date: 20090506
  Serious: Yes (Death)
  Sender: FDA-Public Use
  Company Number: A0751257A

PATIENT
  Sex: Female
  Weight: 75 kg

DRUGS (5)
  1. SERETIDE DISKUS [Suspect]
     Indication: ASTHMA
     Route: 055
     Dates: start: 20070301, end: 20080925
  2. DILACORON [Concomitant]
     Indication: DRUG USE FOR UNKNOWN INDICATION
     Dates: start: 19930101, end: 20080925
  3. CLORANA [Concomitant]
     Indication: DRUG USE FOR UNKNOWN INDICATION
     Route: 065
     Dates: start: 19930101, end: 20080925
  4. SYMBICORT [Concomitant]
     Indication: DRUG USE FOR UNKNOWN INDICATION
     Dosage: 1PUFF PER DAY
     Route: 045
     Dates: start: 20070325, end: 20080925
  5. RIVOTRIL [Concomitant]
     Indication: DRUG USE FOR UNKNOWN INDICATION
     Dosage: 5DROP PER DAY
     Dates: start: 20030101, end: 20080925

REACTIONS (1)
  - RESPIRATORY FAILURE [None]
